FAERS Safety Report 9319483 (Version 1)
Quarter: 2013Q2

REPORT INFORMATION
  Report Type: Spontaneous
  Country: DE (occurrence: None)
  Receive Date: 20130528
  Receipt Date: 20130528
  Transmission Date: 20140414
  Serious: Yes (Hospitalization)
  Sender: FDA-Public Use
  Company Number: 1722882

PATIENT
  Age: 66 Year
  Sex: Female

DRUGS (1)
  1. (CARBOPLATIN) [Suspect]
     Indication: OVARIAN CANCER
     Route: 042

REACTIONS (6)
  - Flushing [None]
  - Chills [None]
  - Dyspnoea [None]
  - Hypersensitivity [None]
  - Vomiting [None]
  - Cardiovascular disorder [None]
